FAERS Safety Report 12130916 (Version 1)
Quarter: 2016Q1

REPORT INFORMATION
  Report Type: Spontaneous
  Country: US (occurrence: None)
  Receive Date: 20160229
  Receipt Date: 20160229
  Transmission Date: 20160526
  Serious: Yes (Hospitalization, Disabling)
  Sender: FDA-Public Use
  Company Number: None

PATIENT
  Age: 37 Year
  Sex: Male
  Weight: 102.06 kg

DRUGS (3)
  1. VITAMIN B SUPPLEMENT [Concomitant]
  2. PROBIOTICS [Concomitant]
     Active Substance: PROBIOTICS NOS
  3. CIPROFLOXACIN. [Suspect]
     Active Substance: CIPROFLOXACIN
     Indication: INFECTION
     Dosage: TWICE DAILY, TAKEN BY MOUTH
     Route: 048
     Dates: start: 20160218, end: 20160224

REACTIONS (4)
  - Muscular weakness [None]
  - Asthenia [None]
  - Feeling abnormal [None]
  - Lethargy [None]

NARRATIVE: CASE EVENT DATE: 20160223
